FAERS Safety Report 5319194-9 (Version None)
Quarter: 2007Q2

REPORT INFORMATION
  Report Type: 
  Country: None (occurrence: None)
  Receive Date: 20070508
  Receipt Date: 20070430
  Transmission Date: 20071010
  Serious: Yes (Other)
  Sender: FDA-Public Use
  Company Number: US-ASTRAZENECA-2006UW23914

PATIENT
  Age: 47 Year
  Sex: Male
  Weight: 98.6 kg

DRUGS (11)
  1. SEROQUEL [Suspect]
     Indication: SCHIZOPHRENIA
     Dosage: 100-200MG
     Route: 048
  2. SEROQUEL [Suspect]
     Indication: ANXIETY
     Dosage: 100-200MG
     Route: 048
  3. SEROQUEL [Suspect]
     Indication: DEPRESSION
     Dosage: 100-200MG
     Route: 048
  4. MARIJUANA [Concomitant]
  5. METHADONE HCL [Concomitant]
  6. ZYPREXA [Concomitant]
     Dates: start: 19980101, end: 20020101
  7. TRILAFON [Concomitant]
     Dates: start: 19820101, end: 19970101
  8. THORAZINE [Concomitant]
     Dates: start: 19950101
  9. RISPERDAL [Concomitant]
     Dates: start: 20040101
  10. GEODON [Concomitant]
     Dates: start: 20020101, end: 20040101
  11. ABILIFY [Concomitant]
     Dates: start: 20030101

REACTIONS (5)
  - DIABETES MELLITUS [None]
  - MYOCARDIAL INFARCTION [None]
  - PALPITATIONS [None]
  - PANCREATITIS [None]
  - TARDIVE DYSKINESIA [None]
